FAERS Safety Report 8619605-7 (Version None)
Quarter: 2012Q3

REPORT INFORMATION
  Report Type: 
  Country: None (occurrence: None)
  Receive Date: 20120824
  Receipt Date: 20120816
  Transmission Date: 20120928
  Serious: No
  Sender: FDA-Public Use
  Company Number: US-B.I. PHARMACEUTICALS,INC./RIDGEFIELD-2012-BP-19675BP

PATIENT
  Sex: Female
  Weight: 54 kg

DRUGS (10)
  1. ADVAIR DISKUS 100/50 [Concomitant]
     Indication: CHRONIC OBSTRUCTIVE PULMONARY DISEASE
     Route: 055
     Dates: start: 20060101
  2. AMITRIPTYLINE HYDROCHLORIDE [Concomitant]
  3. METHOTREXATE [Concomitant]
     Indication: PSORIASIS
     Dosage: 10 MG
     Route: 048
     Dates: start: 20110101
  4. VENTOLIN [Concomitant]
     Indication: CHRONIC OBSTRUCTIVE PULMONARY DISEASE
     Route: 055
     Dates: start: 20070101
  5. AMITRIPTYLINE HYDROCHLORIDE [Concomitant]
     Indication: PAIN
     Dosage: 25 MG
     Route: 048
     Dates: start: 20020101
  6. CALCIUM [Concomitant]
     Indication: BONE DISORDER
     Route: 048
  7. PENTOXIFYLLINE [Concomitant]
     Indication: PAIN IN EXTREMITY
     Route: 048
     Dates: start: 20070101
  8. SPIRIVA [Suspect]
     Indication: CHRONIC OBSTRUCTIVE PULMONARY DISEASE
     Dosage: 18 MCG
     Route: 055
     Dates: start: 20120501, end: 20120801
  9. PAROXETINE [Concomitant]
     Indication: ANXIETY
     Dosage: 20 MG
     Route: 048
     Dates: start: 20030101
  10. VITAMIN D [Concomitant]
     Indication: BONE DISORDER
     Route: 048
     Dates: start: 20110501

REACTIONS (7)
  - GINGIVAL PAIN [None]
  - HYPOGEUSIA [None]
  - RASH [None]
  - URINE OUTPUT DECREASED [None]
  - LIP PAIN [None]
  - ORAL DISCOMFORT [None]
  - CONSTIPATION [None]
